FAERS Safety Report 18243119 (Version 1)
Quarter: 2020Q3

REPORT INFORMATION
  Report Type: Report from Study
  Country: US (occurrence: US)
  Receive Date: 20200908
  Receipt Date: 20200908
  Transmission Date: 20201103
  Serious: Yes (Hospitalization)
  Sender: FDA-Public Use
  Company Number: US-JNJFOC-A-NJ2020-207077

PATIENT
  Age: 21 Year
  Sex: Female
  Weight: 47.62 kg

DRUGS (2)
  1. VELETRI [Suspect]
     Active Substance: EPOPROSTENOL
     Dosage: 16 NG/KG, PER MIN
     Route: 042
  2. VELETRI [Suspect]
     Active Substance: EPOPROSTENOL
     Indication: PULMONARY ARTERIAL HYPERTENSION
     Dosage: 12 NG/KG, PER MIN
     Route: 042

REACTIONS (9)
  - Catheter site pain [Recovering/Resolving]
  - Device leakage [Unknown]
  - Hospitalisation [Unknown]
  - Catheter site pruritus [Unknown]
  - Headache [Unknown]
  - Application site irritation [Recovering/Resolving]
  - Catheter site erythema [Unknown]
  - Catheter site swelling [Unknown]
  - Underdose [Unknown]

NARRATIVE: CASE EVENT DATE: 20200718
